FAERS Safety Report 9712454 (Version 1)
Quarter: 2013Q4

REPORT INFORMATION
  Report Type: Spontaneous
  Country: US (occurrence: US)
  Receive Date: 20131126
  Receipt Date: 20131126
  Transmission Date: 20140711
  Serious: No
  Sender: FDA-Public Use
  Company Number: US-BRISTOL-MYERS SQUIBB COMPANY-18876508

PATIENT
  Sex: Female

DRUGS (4)
  1. BYDUREON [Suspect]
     Indication: TYPE 2 DIABETES MELLITUS
     Dosage: 1DF: 56 UNITS
     Route: 058
     Dates: start: 2013
  2. GLUMETZA [Suspect]
  3. REGULAR INSULIN [Suspect]
     Dosage: 50UNITS/SQ INJ QD?56UNITS/SQ INJ BID
     Route: 058
  4. HUMALOG [Suspect]

REACTIONS (4)
  - Blood glucose decreased [Unknown]
  - Decreased appetite [Unknown]
  - Nausea [Unknown]
  - Eructation [Unknown]
